FAERS Safety Report 5394981-X (Version None)
Quarter: 2007Q3

REPORT INFORMATION
  Report Type: 
  Country: None (occurrence: None)
  Receive Date: 20070724
  Receipt Date: 20070719
  Transmission Date: 20080115
  Serious: Yes (Other)
  Sender: FDA-Public Use
  Company Number: PHEH2007US03620

PATIENT
  Age: 68 Year
  Sex: Male
  Weight: 82.539 kg

DRUGS (4)
  1. ZOMETA [Suspect]
     Indication: METASTASES TO BONE
     Dosage: 4 MG MONTHLY
     Route: 042
     Dates: start: 20060124, end: 20061024
  2. REVLIMID [Concomitant]
     Indication: MULTIPLE MYELOMA
     Dosage: 10 MG D1-D21
     Route: 048
     Dates: start: 20061001
  3. VELCADE [Concomitant]
     Indication: MULTIPLE MYELOMA
     Dosage: 2.6 UNK, UNK
     Route: 042
     Dates: start: 20060601
  4. DEXAMETHASONE [Concomitant]
     Dosage: 12 MBQ, UNK
     Route: 042
     Dates: start: 20060601

REACTIONS (9)
  - BONE DISORDER [None]
  - ENDODONTIC PROCEDURE [None]
  - GINGIVAL OEDEMA [None]
  - GINGIVAL PAIN [None]
  - GINGIVITIS [None]
  - LOOSE TOOTH [None]
  - OSTEONECROSIS [None]
  - PAIN IN JAW [None]
  - TOOTH DISCOLOURATION [None]
